FAERS Safety Report 9219446 (Version 1)
Quarter: 2013Q2

REPORT INFORMATION
  Report Type: Spontaneous
  Country: US (occurrence: US)
  Receive Date: 20130409
  Receipt Date: 20130409
  Transmission Date: 20140414
  Serious: Yes (Other)
  Sender: FDA-Public Use
  Company Number: US-BRISTOL-MYERS SQUIBB COMPANY-18728873

PATIENT
  Age: 75 Year
  Sex: Male

DRUGS (8)
  1. YERVOY [Suspect]
     Dosage: 4 TREATMENTS
  2. ENALAPRIL [Concomitant]
  3. PRAVASTATIN SODIUM [Concomitant]
  4. BABY ASPIRIN [Concomitant]
  5. LEVOTHYROXINE [Concomitant]
  6. FISH OIL [Concomitant]
  7. TIMOLOL [Concomitant]
     Dosage: EYE DROPS
  8. ZANTAC [Concomitant]

REACTIONS (1)
  - Ascites [Unknown]
